FAERS Safety Report 8398042-7 (Version None)
Quarter: 2012Q2

REPORT INFORMATION
  Report Type: 
  Country: None (occurrence: None)
  Receive Date: 20120531
  Receipt Date: 20120523
  Transmission Date: 20120825
  Serious: Yes (Other)
  Sender: FDA-Public Use
  Company Number: TR-ASTELLAS-2012EU003841

PATIENT
  Age: 24 Year
  Sex: Female

DRUGS (1)
  1. TACROLIMUS [Suspect]
     Indication: LIVER TRANSPLANT
     Dosage: 1 MG, UNKNOWN/D
     Route: 065

REACTIONS (2)
  - MATERNAL EXPOSURE DURING PREGNANCY [None]
  - PREMATURE DELIVERY [None]
